FAERS Safety Report 24652834 (Version 1)
Quarter: 2024Q4

REPORT INFORMATION
  Report Type: Spontaneous
  Country: CN (occurrence: CN)
  Receive Date: 20241122
  Receipt Date: 20241122
  Transmission Date: 20250115
  Serious: Yes (Life-Threatening, Other)
  Sender: PFIZER
  Company Number: CN-PFIZER INC-PV202400150059

PATIENT
  Age: 4 Year
  Sex: Male
  Weight: 15 kg

DRUGS (2)
  1. METHOTREXATE SODIUM [Suspect]
     Active Substance: METHOTREXATE SODIUM
     Indication: Acute lymphocytic leukaemia
     Dosage: 1524.380 MG, 1X/DAY
     Route: 042
     Dates: start: 20240530, end: 20240531
  2. DEXTROSE [Concomitant]
     Active Substance: DEXTROSE MONOHYDRATE
     Indication: Vehicle solution use
     Dosage: 250 ML, 1X/DAY
     Route: 042
     Dates: start: 20240530, end: 20240531

REACTIONS (4)
  - Lip injury [Recovering/Resolving]
  - Lip haemorrhage [Recovering/Resolving]
  - Epistaxis [Recovering/Resolving]
  - Abscess [Recovering/Resolving]

NARRATIVE: CASE EVENT DATE: 20240602
